FAERS Safety Report 15769686 (Version 1)
Quarter: 2018Q4

REPORT INFORMATION
  Report Type: Spontaneous
  Country: GB (occurrence: GB)
  Receive Date: 20181228
  Receipt Date: 20181228
  Transmission Date: 20190205
  Serious: Yes (Other)
  Sender: FDA-Public Use
  Company Number: GB-AUROBINDO-AUR-APL-2018-063325

PATIENT
  Age: 59 Year
  Sex: Male
  Weight: 70 kg

DRUGS (2)
  1. IBUPROFEN. [Suspect]
     Active Substance: IBUPROFEN
     Indication: TENDONITIS
     Dosage: 1200 MILLIGRAM, ONCE A DAY
     Route: 048
     Dates: start: 20171004, end: 20171031
  2. TEA TREE OIL. [Suspect]
     Active Substance: TEA TREE OIL
     Indication: FUNGAL INFECTION
     Dosage: 2 DOSAGE FORM, ONCE A DAY, PAINTED ONTO TOENAIL TWICE DAILY
     Route: 065
     Dates: start: 20180915, end: 20181017

REACTIONS (3)
  - Vision blurred [Recovered/Resolved with Sequelae]
  - Visual field defect [Recovered/Resolved with Sequelae]
  - Visual acuity reduced [Recovered/Resolved with Sequelae]

NARRATIVE: CASE EVENT DATE: 20171029
